FAERS Safety Report 8046807 (Version 5)
Quarter: 2013Q3

REPORT INFORMATION
  Report Type: Spontaneous
  Country: GB (occurrence: GB)
  Receive Date: 20110721
  Receipt Date: 20130930
  Transmission Date: 20140515
  Serious: Yes (Life-Threatening, Hospitalization)
  Sender: FDA-Public Use
  Company Number: GB-RANBAXY-2011R1-45900

PATIENT
  Age: 31 Year
  Sex: Female

DRUGS (4)
  1. RAMIPRIL [Suspect]
     Indication: HYPERTENSION
     Dosage: 10 MG, 1/1 DAY
     Route: 065
  2. BENDROFLUMETHIAZIDE [Suspect]
     Indication: HYPERTENSION
     Dosage: 5 MG, QD
     Route: 065
  3. BENDROFLUMETHIAZIDE [Suspect]
     Dosage: 2.5 MG, QD INCREASED TO 5 MG
     Route: 065
  4. MESALAZINE [Concomitant]
     Indication: PRODUCT USED FOR UNKNOWN INDICATION
     Dosage: 800 MG, 2/1 DAYS
     Route: 065

REACTIONS (17)
  - Hypokalaemia [Unknown]
  - Hyponatraemia [Recovered/Resolved]
  - Cardiac arrest [Recovered/Resolved]
  - Asthenia [Unknown]
  - Confusional state [Unknown]
  - Palpitations [Unknown]
  - Paraesthesia [Unknown]
  - Convulsion [Unknown]
  - Presyncope [Unknown]
  - Vomiting [Recovered/Resolved]
  - Water intoxication [Unknown]
  - Ventricular extrasystoles [Unknown]
  - Urine sodium abnormal [Unknown]
  - Blood osmolarity abnormal [Unknown]
  - Blood pressure abnormal [Unknown]
  - Blood potassium abnormal [Unknown]
  - Blood sodium abnormal [Recovered/Resolved]
